FAERS Safety Report 5530027-8 (Version None)
Quarter: 2007Q4

REPORT INFORMATION
  Report Type: 
  Country: None (occurrence: None)
  Receive Date: 20071127
  Receipt Date: 20071114
  Transmission Date: 20080405
  Serious: Yes (Other)
  Sender: FDA-Public Use
  Company Number: 2007BI009519

PATIENT
  Age: 27 Year
  Sex: Female

DRUGS (7)
  1. NATALIZUMAB [Suspect]
     Indication: MULTIPLE SCLEROSIS
     Dosage: 300 MG; QM; IV
     Route: 042
     Dates: start: 20070329, end: 20070426
  2. NATALIZUMAB [Suspect]
     Indication: MULTIPLE SCLEROSIS
     Dosage: 300 MG; QM; IV
     Route: 042
     Dates: start: 20070827, end: 20070827
  3. ZANAFLEX [Concomitant]
  4. VITAPLEX [Concomitant]
  5. DYAZIDE [Concomitant]
  6. CONCERTA [Concomitant]
  7. DEPO [Concomitant]

REACTIONS (16)
  - BLOOD PRESSURE INCREASED [None]
  - CHILLS [None]
  - ERYTHEMA [None]
  - FEAR [None]
  - FLUSHING [None]
  - HEADACHE [None]
  - HYPERHIDROSIS [None]
  - INFUSION RELATED REACTION [None]
  - PAIN [None]
  - PHARYNGOLARYNGEAL PAIN [None]
  - PRURITUS [None]
  - SHOCK [None]
  - TACHYCARDIA [None]
  - THROAT IRRITATION [None]
  - URTICARIA [None]
  - VOMITING [None]
